FAERS Safety Report 5277307-1 (Version None)
Quarter: 2007Q1

REPORT INFORMATION
  Report Type: 
  Country: None (occurrence: None)
  Receive Date: 20061213
  Receipt Date: 20060619
  Transmission Date: 20070707
  Serious: Yes (Hospitalization)
  Sender: FDA-Public Use
  Company Number: 2006UW13006

PATIENT
  Age: 51 Year
  Sex: Female
  Weight: 99.79 kg

DRUGS (7)
  1. SEROQUEL [Suspect]
     Indication: ANXIETY
     Dosage: 50 MG PO
     Route: 048
  2. SEROQUEL [Suspect]
     Indication: ANXIETY
     Dosage: 100 MG PO
     Route: 048
  3. LAMICTAL [Concomitant]
  4. ATIVAN [Concomitant]
  5. SEROQUEL [Suspect]
     Indication: ANXIETY
     Dosage: 400 MG PO
     Route: 048
  6. SEROQUEL [Suspect]
     Indication: ANXIETY
     Dosage: 100 MG PO
     Route: 048
  7. SEROQUEL [Suspect]
     Indication: ANXIETY
     Dosage: 50 MG PO
     Route: 048

REACTIONS (4)
  - ARTHRALGIA [None]
  - DIZZINESS [None]
  - MUSCULAR WEAKNESS [None]
  - NEURALGIA [None]
